FAERS Safety Report 8298675-2 (Version None)
Quarter: 2012Q2

REPORT INFORMATION
  Report Type: 
  Country: None (occurrence: None)
  Receive Date: 20120419
  Receipt Date: 20120413
  Transmission Date: 20120825
  Serious: No
  Sender: FDA-Public Use
  Company Number: US-B.I. PHARMACEUTICALS,INC./RIDGEFIELD-2012-BP-07031BP

PATIENT
  Age: 65 Year
  Sex: Male

DRUGS (1)
  1. ZANTAC 150 [Suspect]
     Indication: HYPOPHAGIA
     Route: 048
     Dates: start: 20120412, end: 20120412

REACTIONS (2)
  - ERUCTATION [None]
  - GASTROINTESTINAL SOUNDS ABNORMAL [None]
